FAERS Safety Report 14477693 (Version 1)
Quarter: 2018Q1

REPORT INFORMATION
  Report Type: Report from Study
  Country: US (occurrence: US)
  Receive Date: 20180201
  Receipt Date: 20180201
  Transmission Date: 20180509
  Serious: No
  Sender: FDA-Public Use
  Company Number: US-EXELIXIS-CABO-17009963

PATIENT
  Age: 72 Year
  Sex: Male

DRUGS (28)
  1. CALCIUM [Concomitant]
     Active Substance: CALCIUM
  2. OXYCONTIN [Concomitant]
     Active Substance: OXYCODONE HYDROCHLORIDE
  3. LEVOTHYROXINE SODIUM. [Concomitant]
     Active Substance: LEVOTHYROXINE SODIUM
  4. CARAFATE [Concomitant]
     Active Substance: SUCRALFATE
  5. MS CONTIN [Concomitant]
     Active Substance: MORPHINE SULFATE
  6. DOCUSATE SODIUM. [Concomitant]
     Active Substance: DOCUSATE SODIUM
  7. CABOMETYX [Suspect]
     Active Substance: CABOZANTINIB S-MALATE
     Indication: METASTASES TO CENTRAL NERVOUS SYSTEM
  8. ALBUTEROL SULFATE. [Concomitant]
     Active Substance: ALBUTEROL SULFATE
  9. VITAMIN B12 [Concomitant]
     Active Substance: CYANOCOBALAMIN
  10. FLUCONAZOLE. [Concomitant]
     Active Substance: FLUCONAZOLE
  11. GABAPENTIN. [Concomitant]
     Active Substance: GABAPENTIN
  12. OMEPRAZOLE. [Concomitant]
     Active Substance: OMEPRAZOLE
  13. PROCHLORPERAZINE MALEATE. [Concomitant]
     Active Substance: PROCHLORPERAZINE MALEATE
  14. MELATONIN [Concomitant]
     Active Substance: MELATONIN
  15. HYCODAN [Concomitant]
     Active Substance: HOMATROPINE METHYLBROMIDE\HYDROCODONE BITARTRATE
  16. BUDESONIDE. [Concomitant]
     Active Substance: BUDESONIDE
  17. ACETAMINOPHEN. [Concomitant]
     Active Substance: ACETAMINOPHEN
  18. ONDANSETRON [Concomitant]
     Active Substance: ONDANSETRON
  19. TAMSULOSIN [Concomitant]
     Active Substance: TAMSULOSIN
  20. ENOXAPARIN [Concomitant]
     Active Substance: ENOXAPARIN
  21. BENZONATATE. [Concomitant]
     Active Substance: BENZONATATE
  22. POLYETHYLENE GLYCOL [Concomitant]
     Active Substance: POLYETHYLENE GLYCOLS
  23. OPDIVO [Concomitant]
     Active Substance: NIVOLUMAB
  24. SIMVASTATIN. [Concomitant]
     Active Substance: SIMVASTATIN
  25. ALLOPURINOL. [Concomitant]
     Active Substance: ALLOPURINOL
  26. RANITIDINE. [Concomitant]
     Active Substance: RANITIDINE
  27. CABOMETYX [Suspect]
     Active Substance: CABOZANTINIB S-MALATE
     Indication: RENAL CANCER
     Dosage: 60 MG, QD
     Route: 048
     Dates: start: 20170627
  28. DUONEB [Concomitant]
     Active Substance: ALBUTEROL SULFATE\IPRATROPIUM BROMIDE

REACTIONS (6)
  - Decubitus ulcer [Unknown]
  - Oesophageal candidiasis [Not Recovered/Not Resolved]
  - Malignant neoplasm progression [Unknown]
  - Epistaxis [Unknown]
  - Drug ineffective [Unknown]
  - Gastrooesophageal reflux disease [Unknown]

NARRATIVE: CASE EVENT DATE: 20170719
